FAERS Safety Report 11004693 (Version 2)
Quarter: 2015Q2

REPORT INFORMATION
  Report Type: Spontaneous
  Country: IT (occurrence: IT)
  Receive Date: 20150409
  Receipt Date: 20150421
  Transmission Date: 20150821
  Serious: Yes (Hospitalization)
  Sender: FDA-Public Use
  Company Number: IT-RECORDATI RARE DISEASES-IT-R13005-15-00036

PATIENT
  Age: 1 Year
  Sex: Male
  Weight: 10 kg

DRUGS (3)
  1. COSMEGEN [Suspect]
     Active Substance: DACTINOMYCIN
     Indication: NEPHROBLASTOMA
     Route: 042
     Dates: start: 20141219
  2. VINCRISTINA TEVA [Suspect]
     Active Substance: VINCRISTINE
     Indication: NEPHROBLASTOMA
     Route: 042
     Dates: start: 20141219, end: 20150226
  3. COSMEGEN [Suspect]
     Active Substance: DACTINOMYCIN
     Dosage: AT A 50% DOSE
     Route: 042
     Dates: end: 20150226

REACTIONS (7)
  - Rash [Recovered/Resolved]
  - Blood fibrinogen increased [Recovered/Resolved]
  - Fibrin D dimer increased [Recovered/Resolved]
  - International normalised ratio increased [Recovered/Resolved]
  - Pyrexia [Recovered/Resolved]
  - Activated partial thromboplastin time ratio increased [Recovered/Resolved]
  - Thrombocytopenia [Recovered/Resolved]

NARRATIVE: CASE EVENT DATE: 20141225
